FAERS Safety Report 6413588-6 (Version None)
Quarter: 2009Q4

REPORT INFORMATION
  Report Type: 
  Country: None (occurrence: None)
  Receive Date: 20091023
  Receipt Date: 20091023
  Transmission Date: 20100525
  Serious: Yes (Other)
  Sender: FDA-Public Use
  Company Number: None

PATIENT
  Age: 18 Year
  Sex: Female
  Weight: 58.9676 kg

DRUGS (1)
  1. TRI LO SPRINTEC [Suspect]
     Indication: BLOOD IRON DECREASED
     Dosage: ONE PILL  ONCE A DAY PO
     Route: 048
     Dates: start: 20090830, end: 20091021

REACTIONS (4)
  - IRRITABILITY [None]
  - METRORRHAGIA [None]
  - MOOD SWINGS [None]
  - WEIGHT INCREASED [None]
